FAERS Safety Report 4482370-1 (Version None)
Quarter: 2004Q4

REPORT INFORMATION
  Report Type: 
  Country: None (occurrence: None)
  Receive Date: 20041022
  Receipt Date: 20030905
  Transmission Date: 20050328
  Serious: No
  Sender: FDA-Public Use
  Company Number: US-BRISTOL-MYERS SQUIBB COMPANY-12375259

PATIENT
  Sex: Female

DRUGS (3)
  1. BUSPAR [Suspect]
     Indication: STRESS SYMPTOMS
     Route: 048
     Dates: start: 20030902
  2. MULTIVITAMIN [Concomitant]
  3. HORMONES [Concomitant]

REACTIONS (2)
  - DIZZINESS [None]
  - NAUSEA [None]
